FAERS Safety Report 18273148 (Version 1)
Quarter: 2020Q3

REPORT INFORMATION
  Report Type: Other
  Country: US (occurrence: US)
  Receive Date: 20200916
  Receipt Date: 20200916
  Transmission Date: 20201103
  Serious: Yes (Hospitalization)
  Sender: FDA-Public Use
  Company Number: US-ROCHE-2677925

PATIENT
  Sex: Female

DRUGS (6)
  1. COTELLIC [Suspect]
     Active Substance: COBIMETINIB
     Indication: METASTASES TO LUNG
     Route: 048
  2. ZELBORAF [Suspect]
     Active Substance: VEMURAFENIB
     Indication: METASTASES TO LUNG
     Route: 048
  3. COTELLIC [Suspect]
     Active Substance: COBIMETINIB
     Indication: MALIGNANT MELANOMA IN SITU
  4. ZELBORAF [Suspect]
     Active Substance: VEMURAFENIB
     Indication: MALIGNANT MELANOMA IN SITU
  5. ZELBORAF [Suspect]
     Active Substance: VEMURAFENIB
     Indication: MALIGNANT MELANOMA
     Dosage: TAKE 4 TABLET(S) BY MOUTH TWICE A DAY
     Route: 048
  6. COTELLIC [Suspect]
     Active Substance: COBIMETINIB
     Indication: MALIGNANT MELANOMA
     Dosage: TAKE 3 TABLET(S) BY MOUTH EVERY DAY FOR 21 DAYS
     Route: 048

REACTIONS (1)
  - Cerebrovascular accident [Unknown]
